FAERS Safety Report 9859843 (Version 2)
Quarter: 2014Q1

REPORT INFORMATION
  Report Type: Report from Study
  Country: US (occurrence: US)
  Receive Date: 20140131
  Receipt Date: 20140303
  Transmission Date: 20141002
  Serious: Yes (Hospitalization)
  Sender: FDA-Public Use
  Company Number: US-US-EMD SERONO, INC.-7265874

PATIENT
  Age: 14 Year
  Sex: Female
  Weight: 48 kg

DRUGS (6)
  1. SAIZEN [(SOMATROPIN (RDNA ORIGIN) FOR INJECTION)] [Suspect]
     Indication: GROWTH RETARDATION
     Route: 058
     Dates: start: 20070928
  2. SAIZEN [(SOMATROPIN (RDNA ORIGIN) FOR INJECTION)] [Suspect]
     Indication: FAILURE TO THRIVE
  3. GLUCOSAMINE [Concomitant]
     Indication: JOINT CONTRACTURE
  4. FLINTSTONES MULTIPLE VITAMINS      /00499901/ [Concomitant]
     Indication: MUCOPOLYSACCHARIDOSIS I
  5. LUPRON [Concomitant]
     Indication: BODY HEIGHT BELOW NORMAL
     Route: 030
     Dates: start: 20111117
  6. OSCAL                              /00108001/ [Concomitant]
     Indication: PRODUCT USED FOR UNKNOWN INDICATION

REACTIONS (1)
  - Plantar fasciitis [Recovered/Resolved]
